FAERS Safety Report 4483524-0 (Version None)
Quarter: 2004Q4

REPORT INFORMATION
  Report Type: 
  Country: None (occurrence: None)
  Receive Date: 20041019
  Receipt Date: 20041019
  Transmission Date: 20050328
  Serious: Yes (Other)
  Sender: FDA-Public Use
  Company Number: None

PATIENT
  Sex: Male

DRUGS (16)
  1. DOTRECOGIN 20 MG [Suspect]
     Indication: SEPSIS
     Dosage: 24 MCG/KG/HR IV
     Route: 042
     Dates: start: 20040720, end: 20040720
  2. ALBUTEROL [Concomitant]
  3. COMBIVENT [Concomitant]
  4. AMIODARONE HCL [Concomitant]
  5. SODIUM BICARBONATE [Concomitant]
  6. HETASTARCH 6% IN 0.9% SODIUM CHLORIDE IN PLASTIC CONTAINER [Concomitant]
  7. INSULIN [Concomitant]
  8. IPRATROPIUM BROMIDE [Concomitant]
  9. METOPROLOL SUCCINATE [Concomitant]
  10. METRONIDAZOLE [Concomitant]
  11. MORPHINE [Concomitant]
  12. PANTOPRAZOLE [Concomitant]
  13. PHENYLEPHRINE [Concomitant]
  14. PIPERACILLIN/TAZOBACTAM [Concomitant]
  15. PROPOFOL [Concomitant]
  16. VASOPRESSIN [Concomitant]

REACTIONS (1)
  - GASTROINTESTINAL HAEMORRHAGE [None]
